FAERS Safety Report 8315486-X (Version None)
Quarter: 2012Q2

REPORT INFORMATION
  Report Type: 
  Country: None (occurrence: None)
  Receive Date: 20120426
  Receipt Date: 20120416
  Transmission Date: 20120825
  Serious: Yes (Death, Hospitalization)
  Sender: FDA-Public Use
  Company Number: IE-MEDIMMUNE-MEDI-0013937

PATIENT
  Sex: Female

DRUGS (2)
  1. OXYGEN [Concomitant]
  2. SYNAGIS [Suspect]
     Route: 030
     Dates: start: 20111001, end: 20111001

REACTIONS (4)
  - INFECTION [None]
  - CARDIAC ARREST [None]
  - APNOEA [None]
  - MALAISE [None]
